FAERS Safety Report 12485006 (Version 1)
Quarter: 2016Q2

REPORT INFORMATION
  Report Type: Spontaneous
  Country: GB (occurrence: GB)
  Receive Date: 20160621
  Receipt Date: 20160621
  Transmission Date: 20160815
  Serious: Yes (Other)
  Sender: FDA-Public Use
  Company Number: GB-GLAXOSMITHKLINE-B0359814A

PATIENT
  Age: 18 Year
  Sex: Female

DRUGS (2)
  1. PAROXETINE. [Suspect]
     Active Substance: PAROXETINE
     Indication: PRODUCT USED FOR UNKNOWN INDICATION
     Dosage: 20 MG, QD
     Route: 048
     Dates: start: 20010420, end: 20010611
  2. SEROXAT [Suspect]
     Active Substance: PAROXETINE HYDROCHLORIDE
     Indication: DEPRESSION
     Route: 065
     Dates: start: 20010420

REACTIONS (13)
  - Decreased appetite [Unknown]
  - Drug withdrawal syndrome [Unknown]
  - Intentional self-injury [Unknown]
  - Disturbance in attention [Unknown]
  - Suicidal ideation [Unknown]
  - Vision blurred [Unknown]
  - Aggression [Unknown]
  - Weight decreased [Unknown]
  - Mania [Unknown]
  - Memory impairment [Unknown]
  - Insomnia [Unknown]
  - Abdominal pain upper [Unknown]
  - Dizziness [Unknown]

NARRATIVE: CASE EVENT DATE: 20010630
